FAERS Safety Report 10455477 (Version 1)
Quarter: 2014Q3

REPORT INFORMATION
  Report Type: Spontaneous
  Country: US (occurrence: None)
  Receive Date: 20140915
  Receipt Date: 20140915
  Transmission Date: 20150326
  Serious: Yes (Other)
  Sender: FDA-Public Use
  Company Number: None

PATIENT
  Age: 25 Year
  Sex: Female
  Weight: 61.24 kg

DRUGS (1)
  1. NEXPLANON [Suspect]
     Active Substance: ETONOGESTREL
     Indication: CONTRACEPTION
     Dates: start: 20131106, end: 20140811

REACTIONS (6)
  - Lethargy [None]
  - Menstrual disorder [None]
  - Visual pathway disorder [None]
  - Eye complication associated with device [None]
  - Weight increased [None]
  - Ocular discomfort [None]

NARRATIVE: CASE EVENT DATE: 20140811
